FAERS Safety Report 21253561 (Version 1)
Quarter: 2022Q3

REPORT INFORMATION
  Report Type: Spontaneous
  Country: US (occurrence: None)
  Receive Date: 20220824
  Receipt Date: 20220824
  Transmission Date: 20221027
  Serious: Yes (Hospitalization)
  Sender: FDA-Public Use
  Company Number: None

PATIENT
  Age: 73 Year
  Sex: Male
  Weight: 116 kg

DRUGS (1)
  1. DEXTROSE\HEPARIN SODIUM [Suspect]
     Active Substance: DEXTROSE\HEPARIN SODIUM
     Indication: Deep vein thrombosis
     Route: 042
     Dates: start: 20220804, end: 20220805

REACTIONS (1)
  - Thrombocytopenia [None]

NARRATIVE: CASE EVENT DATE: 20220805
